FAERS Safety Report 15665753 (Version 2)
Quarter: 2018Q4

REPORT INFORMATION
  Report Type: Spontaneous
  Country: BE (occurrence: BE)
  Receive Date: 20181128
  Receipt Date: 20181205
  Transmission Date: 20190205
  Serious: Yes (Other)
  Sender: FDA-Public Use
  Company Number: PHHY2018BE153281

PATIENT
  Sex: Male

DRUGS (4)
  1. NITAZOXANIDE [Suspect]
     Active Substance: NITAZOXANIDE
     Indication: VIRAL INFECTION
     Route: 065
  2. ITRACONAZOLE. [Suspect]
     Active Substance: ITRACONAZOLE
     Indication: BRUTON^S AGAMMAGLOBULINAEMIA
     Dosage: DISCONTINUED AFTER A FEW DAYS
     Route: 065
  3. FLUOXETINE [Suspect]
     Active Substance: FLUOXETINE HYDROCHLORIDE
     Indication: BRUTON^S AGAMMAGLOBULINAEMIA
     Dosage: UNK
     Route: 065
  4. ITRACONAZOLE. [Suspect]
     Active Substance: ITRACONAZOLE
     Indication: PICORNAVIRUS INFECTION

REACTIONS (4)
  - Off label use [Unknown]
  - Hepatotoxicity [Unknown]
  - Product use in unapproved indication [Unknown]
  - Drug ineffective [Unknown]
